FAERS Safety Report 4557830-5 (Version None)
Quarter: 2005Q1

REPORT INFORMATION
  Report Type: 
  Country: None (occurrence: None)
  Receive Date: 20050118
  Receipt Date: 20041230
  Transmission Date: 20050727
  Serious: Yes (Death, Hospitalization)
  Sender: FDA-Public Use
  Company Number: 105614ISR

PATIENT
  Age: 63 Year
  Sex: Male

DRUGS (6)
  1. FLUOROURACIL [Suspect]
     Indication: OESOPHAGEAL CARCINOMA
     Dosage: 7650 MILLIGRAM
     Route: 042
     Dates: start: 20041108, end: 20041112
  2. CISPLATIN [Suspect]
     Indication: OESOPHAGEAL CARCINOMA
     Dosage: 153 MILLIGRAM
     Route: 042
     Dates: start: 20041108, end: 20041108
  3. ACENOCOUMAROL [Concomitant]
  4. MOLSIDOMINE [Concomitant]
  5. ATENOLOL [Concomitant]
  6. ATORVASTATIN [Concomitant]

REACTIONS (11)
  - ATRIAL FIBRILLATION [None]
  - BONE MARROW DEPRESSION [None]
  - CACHEXIA [None]
  - CARDIAC DISORDER [None]
  - DYSPHAGIA [None]
  - MUCORMYCOSIS [None]
  - MUCOSAL INFLAMMATION [None]
  - MYOCARDIAL ISCHAEMIA [None]
  - NASAL NECROSIS [None]
  - SKIN NECROSIS [None]
  - WEIGHT DECREASED [None]
